FAERS Safety Report 4452034-9 (Version None)
Quarter: 2004Q3

REPORT INFORMATION
  Report Type: 
  Country: None (occurrence: None)
  Receive Date: 20040917
  Receipt Date: 20040907
  Transmission Date: 20050211
  Serious: Yes (Hospitalization)
  Sender: FDA-Public Use
  Company Number: FR-JNJFOC-20040303928

PATIENT
  Age: 82 Year
  Sex: Male

DRUGS (4)
  1. TOPALGIC [Suspect]
     Indication: MULTIPLE MYELOMA
     Route: 049
  2. RIVOTRIL [Concomitant]
     Route: 049
  3. CELECTOL [Concomitant]
  4. ASPEGIC 325 [Concomitant]

REACTIONS (4)
  - CONFUSIONAL STATE [None]
  - DEHYDRATION [None]
  - DISORIENTATION [None]
  - RENAL FAILURE ACUTE [None]
